FAERS Safety Report 24987680 (Version 2)
Quarter: 2025Q2

REPORT INFORMATION
  Report Type: Spontaneous
  Country: US (occurrence: US)
  Receive Date: 20250219
  Receipt Date: 20250618
  Transmission Date: 20250716
  Serious: No
  Sender: SUNOVION
  Company Number: US-SMPA-2025SPA001105AA

PATIENT

DRUGS (8)
  1. ORGOVYX [Suspect]
     Active Substance: RELUGOLIX
     Indication: Prostate cancer
     Dosage: 360 MG, SINGLE
     Route: 048
     Dates: start: 202411, end: 202411
  2. ORGOVYX [Suspect]
     Active Substance: RELUGOLIX
     Dosage: 120 MG, QD
     Route: 048
     Dates: start: 202411
  3. ALLOPURINOL [Concomitant]
     Active Substance: ALLOPURINOL
     Route: 065
  4. AMLODIPINE [Concomitant]
     Active Substance: AMLODIPINE BESYLATE
     Route: 065
  5. ATORVASTATIN [Concomitant]
     Active Substance: ATORVASTATIN
     Route: 065
  6. ASPIRIN [Concomitant]
     Active Substance: ASPIRIN
     Route: 065
  7. MIRABEGRON [Concomitant]
     Active Substance: MIRABEGRON
     Route: 065
  8. TELMISARTAN [Concomitant]
     Active Substance: TELMISARTAN
     Route: 065

REACTIONS (5)
  - Hot flush [Unknown]
  - Diarrhoea [Unknown]
  - Weight increased [Unknown]
  - Hyperhidrosis [Unknown]
  - Fatigue [Unknown]
